FAERS Safety Report 6616733-2 (Version None)
Quarter: 2010Q1

REPORT INFORMATION
  Report Type: 
  Country: None (occurrence: None)
  Receive Date: 20100305
  Receipt Date: 20100303
  Transmission Date: 20100710
  Serious: Yes (Death)
  Sender: FDA-Public Use
  Company Number: JP-PFIZER INC-2010027925

PATIENT

DRUGS (1)
  1. SILDENAFIL CITRATE [Suspect]
     Route: 048

REACTIONS (1)
  - DEATH [None]
